FAERS Safety Report 15601307 (Version 1)
Quarter: 2018Q4

REPORT INFORMATION
  Report Type: Spontaneous
  Country: US (occurrence: US)
  Receive Date: 20181108
  Receipt Date: 20181108
  Transmission Date: 20190205
  Serious: No
  Sender: FDA-Public Use
  Company Number: None

PATIENT
  Age: 12 Year
  Sex: Female
  Weight: 86.4 kg

DRUGS (4)
  1. LATUDA 40MG PO BID [Concomitant]
     Dates: start: 20180822, end: 20180822
  2. LATUDA [Suspect]
     Active Substance: LURASIDONE HYDROCHLORIDE
     Route: 048
     Dates: start: 20180823, end: 20180824
  3. DEPAKOTE ER 750MG PO QHS [Concomitant]
     Dates: start: 20180824, end: 20180828
  4. DEPAKOTE ER 500MG PO QHS [Concomitant]
     Dates: start: 20180823, end: 20180823

REACTIONS (1)
  - Eye movement disorder [None]

NARRATIVE: CASE EVENT DATE: 20180824
